FAERS Safety Report 6965690-8 (Version None)
Quarter: 2010Q3

REPORT INFORMATION
  Report Type: 
  Country: None (occurrence: None)
  Receive Date: 20100903
  Receipt Date: 20100830
  Transmission Date: 20110219
  Serious: Yes (Hospitalization)
  Sender: FDA-Public Use
  Company Number: JP-ROCHE-721723

PATIENT
  Sex: Male
  Weight: 70 kg

DRUGS (17)
  1. ACTEMRA [Suspect]
     Indication: RHEUMATOID ARTHRITIS
     Route: 041
     Dates: start: 20080724, end: 20080724
  2. ACTEMRA [Suspect]
     Route: 041
     Dates: start: 20080827, end: 20080827
  3. ACTEMRA [Suspect]
     Route: 041
     Dates: start: 20081022, end: 20081022
  4. ACTEMRA [Suspect]
     Route: 041
     Dates: start: 20081119, end: 20081119
  5. ACTEMRA [Suspect]
     Route: 041
     Dates: start: 20081217, end: 20081217
  6. ACTEMRA [Suspect]
     Route: 041
     Dates: start: 20090114, end: 20090114
  7. ACTEMRA [Suspect]
     Dosage: NOTE:DOSAGE IS UNCERTAIN.
     Route: 041
  8. ACTEMRA [Suspect]
     Route: 041
     Dates: end: 20100609
  9. PREDONINE [Concomitant]
     Route: 048
  10. PREDONINE [Concomitant]
     Route: 048
  11. VOLTAREN [Concomitant]
     Dosage: DRUG: VOLTAREN(DICLOFENAC SODIUM) FORM: SUPPOSITORIAE RECTALE
     Route: 054
  12. MUCOSTA [Concomitant]
     Route: 048
  13. BONALON [Concomitant]
     Dosage: DRUG:BONALON 5MG(ALENDRONATE SODIUM HYDRATE)
     Route: 048
  14. AMLODIPINE BESYLATE [Concomitant]
     Route: 048
  15. TANATRIL [Concomitant]
     Route: 048
  16. MYSLEE [Concomitant]
     Dosage: DRUG: MYSLEE(ZOLPIDEM TARTRATE)
     Route: 048
  17. DOXAZOSIN MESYLATE [Concomitant]
     Dosage: DRUG:CARDENALIN(DOXAZOSIN MESILATE)
     Route: 048

REACTIONS (2)
  - HERPES ZOSTER [None]
  - LARGE INTESTINE CARCINOMA [None]
